FAERS Safety Report 7033966-4 (Version None)
Quarter: 2010Q4

REPORT INFORMATION
  Report Type: 
  Country: None (occurrence: None)
  Receive Date: 20101005
  Receipt Date: 20080424
  Transmission Date: 20110411
  Serious: Yes (Other)
  Sender: FDA-Public Use
  Company Number: 2010PV000069

PATIENT
  Age: 65 Year
  Sex: Male

DRUGS (8)
  1. DEPOCYT [Suspect]
     Indication: PROPHYLAXIS
     Dosage: 50 MG; INTH
     Route: 037
  2. RITUXIMAB [Concomitant]
  3. METHOTREXATE [Concomitant]
  4. CYCLOPHOSPHAMIDE [Concomitant]
  5. VINCRISTINE [Concomitant]
  6. DOXORUBICIN [Concomitant]
  7. DEXAMETHASONE [Concomitant]
  8. CYTARABINE [Concomitant]

REACTIONS (8)
  - CAUDA EQUINA SYNDROME [None]
  - DECUBITUS ULCER [None]
  - DEEP VEIN THROMBOSIS [None]
  - FAECAL INCONTINENCE [None]
  - MICTURITION DISORDER [None]
  - NEUROTOXICITY [None]
  - PNEUMONIA CYTOMEGALOVIRAL [None]
  - URINARY INCONTINENCE [None]
